FAERS Safety Report 16557982 (Version 1)
Quarter: 2019Q3

REPORT INFORMATION
  Report Type: Spontaneous
  Country: DE (occurrence: DE)
  Receive Date: 20190711
  Receipt Date: 20190711
  Transmission Date: 20191004
  Serious: Yes (Hospitalization, Other)
  Sender: FDA-Public Use
  Company Number: DE-AMGEN-DEUSP2019085693

PATIENT
  Age: 78 Year
  Sex: Female
  Weight: 53 kg

DRUGS (4)
  1. ARCOXIA [Concomitant]
     Active Substance: ETORICOXIB
     Indication: BACK PAIN
     Dosage: 60 MILLIGRAM, QD
     Dates: start: 201902, end: 20190509
  2. CANDESARTAN. [Concomitant]
     Active Substance: CANDESARTAN
     Indication: HYPERTENSION
     Dosage: 16 MILLIGRAM, BID
     Dates: start: 201810, end: 20190509
  3. TARGIN [Concomitant]
     Active Substance: NALOXONE HYDROCHLORIDE\OXYCODONE HYDROCHLORIDE
     Indication: BACK PAIN
     Dosage: 5/2.5 MILLIGRAM, BID
     Dates: start: 201902, end: 20190509
  4. PROLIA [Suspect]
     Active Substance: DENOSUMAB
     Indication: OSTEOPOROSIS
     Dosage: 60 MILLIGRAM
     Route: 058
     Dates: start: 20190423

REACTIONS (11)
  - Dysarthria [Unknown]
  - Hyponatraemia [Not Recovered/Not Resolved]
  - Dyspnoea [Not Recovered/Not Resolved]
  - Urinary tract obstruction [Unknown]
  - Eructation [Unknown]
  - Dehydration [Unknown]
  - Vomiting [Recovered/Resolved]
  - Choking [Unknown]
  - Gait inability [Unknown]
  - Dysphagia [Not Recovered/Not Resolved]
  - Hypocalcaemia [Recovered/Resolved]

NARRATIVE: CASE EVENT DATE: 201905
